FAERS Safety Report 6162650-4 (Version None)
Quarter: 2009Q2

REPORT INFORMATION
  Report Type: 
  Country: None (occurrence: None)
  Receive Date: 20090421
  Receipt Date: 20080728
  Transmission Date: 20091009
  Serious: No
  Sender: FDA-Public Use
  Company Number: US-ASTRAZENECA-2008UW15571

PATIENT
  Age: 73 Year
  Sex: Male
  Weight: 87.5 kg

DRUGS (4)
  1. CASODEX [Suspect]
     Indication: PROSTATE CANCER
     Route: 048
     Dates: start: 20080601
  2. HORMONE THERAPY [Concomitant]
     Dates: start: 20080601
  3. MONOCYLINE [Concomitant]
     Indication: ROSACEA
  4. ELLERGAN [Concomitant]

REACTIONS (3)
  - DECREASED APPETITE [None]
  - POLLAKIURIA [None]
  - URINARY INCONTINENCE [None]
